FAERS Safety Report 8335507-8 (Version None)
Quarter: 2012Q2

REPORT INFORMATION
  Report Type: 
  Country: None (occurrence: None)
  Receive Date: 20120503
  Receipt Date: 20120425
  Transmission Date: 20120825
  Serious: Yes (Other)
  Sender: FDA-Public Use
  Company Number: JP-BAXTER-2012BAX003833

PATIENT
  Age: 52 Year
  Sex: Male

DRUGS (2)
  1. DIANEAL-N PD-4 1.5 PD SOLUTION [Suspect]
     Indication: DIABETIC NEPHROPATHY
     Route: 033
     Dates: start: 20080630, end: 20100527
  2. EXTRANEAL [Suspect]
     Indication: DIABETIC NEPHROPATHY
     Route: 033
     Dates: start: 20080630, end: 20100527

REACTIONS (1)
  - MESENTERIC PANNICULITIS [None]
